FAERS Safety Report 21064661 (Version 1)
Quarter: 2022Q3

REPORT INFORMATION
  Report Type: Spontaneous
  Country: US (occurrence: None)
  Receive Date: 20220710
  Receipt Date: 20220710
  Transmission Date: 20221026
  Serious: Yes (Other)
  Sender: FDA-Public Use
  Company Number: None

PATIENT
  Age: 67 Year
  Sex: Female
  Weight: 70.2 kg

DRUGS (6)
  1. CIPROFLOXACIN AND DEXAMETHASONE [Suspect]
     Active Substance: CIPROFLOXACIN HYDROCHLORIDE\DEXAMETHASONE
     Indication: Ear infection
     Dosage: OTHER QUANTITY : 4 DROP(S);?FREQUENCY : TWICE A DAY;?
     Route: 001
     Dates: start: 20220707, end: 20220709
  2. THYROXINE [Concomitant]
     Active Substance: LEVOTHYROXINE
  3. EFFEXOR [Concomitant]
     Active Substance: VENLAFAXINE HYDROCHLORIDE
  4. LOSARTAN [Concomitant]
     Active Substance: LOSARTAN
  5. tropal [Concomitant]
  6. PANTOPRAZOLE SODIUM [Concomitant]
     Active Substance: PANTOPRAZOLE SODIUM

REACTIONS (4)
  - Ear pain [None]
  - Ear pruritus [None]
  - Ear canal erythema [None]
  - Tympanic membrane disorder [None]

NARRATIVE: CASE EVENT DATE: 20220710
